FAERS Safety Report 5031782-6 (Version None)
Quarter: 2006Q2

REPORT INFORMATION
  Report Type: 
  Country: None (occurrence: None)
  Receive Date: 20060619
  Receipt Date: 20060602
  Transmission Date: 20061013
  Serious: No
  Sender: FDA-Public Use
  Company Number: 35016

PATIENT
  Age: 1 Month
  Sex: Female

DRUGS (6)
  1. ATROPINE [Suspect]
     Dosage: 2 GTTS ONCE
     Route: 047
     Dates: start: 20060109, end: 20060109
  2. TROPICAMIDE [Concomitant]
  3. RANITIDINE [Concomitant]
  4. DOMPERIDONE [Concomitant]
  5. SODIUM ALGINATE [Concomitant]
  6. SODIUM BICARBONATE [Concomitant]

REACTIONS (1)
  - INTESTINAL OBSTRUCTION [None]
